FAERS Safety Report 16885262 (Version 1)
Quarter: 2019Q4

REPORT INFORMATION
  Report Type: Spontaneous
  Country: US (occurrence: US)
  Receive Date: 20191004
  Receipt Date: 20191004
  Transmission Date: 20200122
  Serious: No
  Sender: FDA-Public Use
  Company Number: US-AVEDRO-AVE-2019-0228-AE

PATIENT
  Age: 28 Year
  Sex: Male

DRUGS (3)
  1. KXL SYSTEM [Suspect]
     Active Substance: DEVICE
     Indication: KERATOCONUS
     Route: 047
     Dates: start: 20190716, end: 20190716
  2. PHOTREXA [Suspect]
     Active Substance: RIBOFLAVIN 5^-PHOSPHATE SODIUM
     Dosage: 1 DROP EVERY 2 MINUTES FOR 30 MINUTES
     Route: 047
     Dates: start: 20190716, end: 20190716
  3. PHOTREXA [Suspect]
     Active Substance: RIBOFLAVIN 5^-PHOSPHATE SODIUM
     Indication: KERATOCONUS
     Dosage: 1 DROP EVERY 2 MINUTES FOR 30 MINUTES
     Route: 047
     Dates: start: 20190716, end: 20190716

REACTIONS (5)
  - Inappropriate schedule of product administration [Unknown]
  - Incorrect product formulation administered [Unknown]
  - Product packaging confusion [Unknown]
  - Product appearance confusion [Unknown]
  - No adverse event [Unknown]

NARRATIVE: CASE EVENT DATE: 20190716
